FAERS Safety Report 8591617-1 (Version None)
Quarter: 2012Q3

REPORT INFORMATION
  Report Type: 
  Country: None (occurrence: None)
  Receive Date: 20120814
  Receipt Date: 20120809
  Transmission Date: 20120928
  Serious: Yes (Hospitalization)
  Sender: FDA-Public Use
  Company Number: US-PFIZER INC-2012194942

PATIENT
  Age: 66 Year
  Sex: Male
  Weight: 63.492 kg

DRUGS (1)
  1. VFEND [Suspect]
     Indication: RENAL TRANSPLANT
     Dosage: 250 MG, 2X/DAY
     Route: 048

REACTIONS (1)
  - INFECTION [None]
